FAERS Safety Report 7236575-7 (Version None)
Quarter: 2011Q1

REPORT INFORMATION
  Report Type: 
  Country: None (occurrence: None)
  Receive Date: 20110120
  Receipt Date: 20110114
  Transmission Date: 20110831
  Serious: Yes (Other)
  Sender: FDA-Public Use
  Company Number: FR-PFIZER INC-2011010696

PATIENT
  Age: 45 Year
  Sex: Male

DRUGS (2)
  1. RHINADVIL [Suspect]
     Indication: SELF-MEDICATION
  2. RHINADVIL [Suspect]
     Indication: NASOPHARYNGITIS
     Dosage: 1 DF, SINGLE
     Dates: start: 20101201, end: 20101201

REACTIONS (1)
  - BLOOD PRESSURE INCREASED [None]
